FAERS Safety Report 14022008 (Version 6)
Quarter: 2018Q1

REPORT INFORMATION
  Report Type: Spontaneous
  Country: AU (occurrence: AU)
  Receive Date: 20170928
  Receipt Date: 20180109
  Transmission Date: 20180508
  Serious: Yes (Other)
  Sender: FDA-Public Use
  Company Number: AU-PFIZER INC-2017409976

PATIENT
  Age: 68 Year
  Sex: Female
  Weight: 75 kg

DRUGS (10)
  1. STELAZINE [Suspect]
     Active Substance: TRIFLUOPERAZINE HYDROCHLORIDE
     Dosage: UNK
  2. PANADOL [Suspect]
     Active Substance: ACETAMINOPHEN
     Dosage: UNK
  3. LIPITOR [Suspect]
     Active Substance: ATORVASTATIN CALCIUM
     Dosage: UNK
  4. MOBIC [Suspect]
     Active Substance: MELOXICAM
     Dosage: UNK
  5. ZOLOFT [Suspect]
     Active Substance: SERTRALINE HYDROCHLORIDE
     Dosage: UNK
  6. SYMBICORT [Suspect]
     Active Substance: BUDESONIDE\FORMOTEROL FUMARATE DIHYDRATE
     Dosage: UNK
  7. CLOPINE [Suspect]
     Active Substance: CLOZAPINE
     Dosage: 225 MG, DAILY
     Route: 048
     Dates: start: 20170922, end: 20171201
  8. KARVEA [Suspect]
     Active Substance: IRBESARTAN
     Dosage: UNK
  9. FISH OIL [Suspect]
     Active Substance: FISH OIL
     Dosage: UNK
  10. OSTELIN /00107901/ [Suspect]
     Active Substance: ERGOCALCIFEROL
     Dosage: UNK

REACTIONS (7)
  - Alopecia [Unknown]
  - Pruritus [Unknown]
  - Weight decreased [Unknown]
  - Decreased appetite [Unknown]
  - Neutropenia [Unknown]
  - Vulvovaginal candidiasis [Unknown]
  - Nasopharyngitis [Unknown]

NARRATIVE: CASE EVENT DATE: 2010
